FAERS Safety Report 22517314 (Version 1)
Quarter: 2023Q2

REPORT INFORMATION
  Report Type: Spontaneous
  Country: JP (occurrence: JP)
  Receive Date: 20230603
  Receipt Date: 20230603
  Transmission Date: 20230721
  Serious: Yes (Other)
  Sender: FDA-Public Use
  Company Number: JP-AMGEN-JPNSP2023092870

PATIENT
  Sex: Female

DRUGS (1)
  1. EVENITY [Suspect]
     Active Substance: ROMOSOZUMAB-AQQG
     Indication: Osteoporosis
     Dosage: 210 MILLIGRAM
     Route: 058
     Dates: start: 20230416

REACTIONS (4)
  - Abdominal distension [Unknown]
  - Gait inability [Unknown]
  - Gingival pain [Not Recovered/Not Resolved]
  - Body mass index decreased [Unknown]

NARRATIVE: CASE EVENT DATE: 20230101
